FAERS Safety Report 19279902 (Version 4)
Quarter: 2021Q3

REPORT INFORMATION
  Report Type: Report from Study
  Country: US (occurrence: US)
  Receive Date: 20210520
  Receipt Date: 20210812
  Transmission Date: 20211014
  Serious: Yes (Other)
  Sender: FDA-Public Use
  Company Number: US-ROCHE-2830722

PATIENT
  Age: 63 Year
  Sex: Male
  Weight: 103.4 kg

DRUGS (40)
  1. LEVOFLOXACIN. [Concomitant]
     Active Substance: LEVOFLOXACIN
     Indication: NASOPHARYNGITIS
  2. LEVOFLOXACIN. [Concomitant]
     Active Substance: LEVOFLOXACIN
     Indication: COUGH
  3. ALBUTEROL SULFATE. [Concomitant]
     Active Substance: ALBUTEROL SULFATE
     Indication: ASTHMA
  4. AMPYRA [Concomitant]
     Active Substance: DALFAMPRIDINE
     Indication: ATAXIA
  5. ASPIRIN. [Concomitant]
     Active Substance: ASPIRIN
  6. MAGNESIUM GLYCINATE [Concomitant]
     Active Substance: MAGNESIUM GLYCINATE
  7. BACLOFEN. [Concomitant]
     Active Substance: BACLOFEN
     Indication: MUSCLE SPASTICITY
  8. IBUPROFEN. [Concomitant]
     Active Substance: IBUPROFEN
  9. MELATONIN [Concomitant]
     Active Substance: MELATONIN
  10. OCRELIZUMAB. [Suspect]
     Active Substance: OCRELIZUMAB
     Dosage: TOTAL VOLUME 520 ML
     Route: 042
     Dates: start: 20130124, end: 20130124
  11. OCRELIZUMAB. [Suspect]
     Active Substance: OCRELIZUMAB
     Indication: RELAPSING-REMITTING MULTIPLE SCLEROSIS
     Dosage: TOTAL VOLUME 260 ML
     Route: 042
     Dates: start: 20140109, end: 20140109
  12. ACETAMINOPHEN. [Concomitant]
     Active Substance: ACETAMINOPHEN
     Dosage: SUBSEQUENT DOSE ON 08/MAR/2012, 09/AUG/2012, 09/JAN/2014, 27/JAN/2014, 28/MAY/2015, 09/NOV/2015, 28/
     Dates: start: 20120223
  13. METHYLPREDNISOLONE. [Concomitant]
     Active Substance: METHYLPREDNISOLONE
     Dosage: SUBSEQUENT DOSE ON 08MAR2012, 09AUG2012, 24JAN2013, 11JUL2013, 09JAN2014, 27JAN2014, 26JUN2014, 11DE
     Dates: start: 20120223, end: 20120223
  14. MODAFINIL. [Concomitant]
     Active Substance: MODAFINIL
     Indication: FATIGUE
  15. COZAAR [Concomitant]
     Active Substance: LOSARTAN POTASSIUM
  16. AMLODIPINE [Concomitant]
     Active Substance: AMLODIPINE BESYLATE
  17. CLARITIN [Concomitant]
     Active Substance: LORATADINE
     Indication: SEASONAL ALLERGY
  18. VITAMIN B COMPLEX [Concomitant]
     Active Substance: CYANOCOBALAMIN\DEXPANTHENOL\NIACINAMIDE\PYRIDOXINE HYDROCHLORIDE\RIBOFLAVIN 5^-PHOSPHATE SODIUM\THIAMINE HYDROCHLORIDE\VITAMIN B COMPLEX
  19. OCRELIZUMAB. [Suspect]
     Active Substance: OCRELIZUMAB
     Dosage: TOTAL VOLUME 200 ML
     Route: 042
     Dates: start: 20120308, end: 20120308
  20. OCRELIZUMAB. [Suspect]
     Active Substance: OCRELIZUMAB
     Dosage: TOTAL VOLUME 520 ML
     Route: 042
     Dates: start: 20130711, end: 20130711
  21. OCRELIZUMAB. [Suspect]
     Active Substance: OCRELIZUMAB
     Dosage: TOTAL VOLUME 260 ML
     Route: 042
     Dates: start: 20140127, end: 20140127
  22. OCRELIZUMAB. [Suspect]
     Active Substance: OCRELIZUMAB
     Dosage: SUBSEQUENT DOSE (TOTAL VOLUME 520 ML) RECEIVED ON 11/DEC/2014, 28/MAY/2015, 09/NOV/2015, 28/APR/2016
     Route: 042
     Dates: start: 20140626, end: 20140626
  23. BENADRYL [Concomitant]
     Active Substance: DIPHENHYDRAMINE HYDROCHLORIDE
     Dates: start: 20190725
  24. FLONASE [Concomitant]
     Active Substance: FLUTICASONE PROPIONATE
     Indication: CHRONIC SINUSITIS
  25. VIAGRA [Concomitant]
     Active Substance: SILDENAFIL CITRATE
  26. OCRELIZUMAB. [Suspect]
     Active Substance: OCRELIZUMAB
     Dosage: TOTAL VOLUME 520 ML
     Route: 042
     Dates: start: 20120809, end: 20120809
  27. DIPHENHYDRAMINE. [Concomitant]
     Active Substance: DIPHENHYDRAMINE
     Dosage: SUBSEQUENT DOSE ON 08/MAR/2012, 09/AUG/2012, 11/JUL/2013, 27/JAN/2014, 26/JUN/2014, 11/DEC/2014, 28/
     Dates: start: 20140223
  28. NORVASC [Concomitant]
     Active Substance: AMLODIPINE BESYLATE
     Indication: HYPERTENSION
  29. OCRELIZUMAB. [Suspect]
     Active Substance: OCRELIZUMAB
     Indication: RELAPSING-REMITTING MULTIPLE SCLEROSIS
     Dosage: TOTAL VOLUME 200 ML
     Route: 042
     Dates: start: 20120223, end: 20120223
  30. ZOLOFT [Concomitant]
     Active Substance: SERTRALINE HYDROCHLORIDE
     Indication: ANXIETY
  31. PREDNISONE. [Concomitant]
     Active Substance: PREDNISONE
  32. ANDROGEL [Concomitant]
     Active Substance: TESTOSTERONE
     Indication: BLOOD TESTOSTERONE DECREASED
  33. PLACEBO [Suspect]
     Active Substance: UNSPECIFIED INGREDIENT
     Indication: RELAPSING-REMITTING MULTIPLE SCLEROSIS
     Route: 058
     Dates: start: 20120223, end: 20120223
  34. PLACEBO [Suspect]
     Active Substance: UNSPECIFIED INGREDIENT
     Route: 058
     Dates: start: 20140109, end: 20140109
  35. XARELTO [Concomitant]
     Active Substance: RIVAROXABAN
  36. CEFUROXIME. [Concomitant]
     Active Substance: CEFUROXIME
     Dates: start: 20141204
  37. TYLENOL [Concomitant]
     Active Substance: ACETAMINOPHEN
     Dosage: SUBSEQUENT DOSE ON 11JUL2013, 26JUN2014, 11DEC2014, 13OCT2016, 25JUL2019
     Dates: start: 20130124
  38. SPIRONOLACTONE. [Concomitant]
     Active Substance: SPIRONOLACTONE
     Indication: HYPERTENSION
  39. AMBIEN [Concomitant]
     Active Substance: ZOLPIDEM TARTRATE
     Indication: INSOMNIA
  40. BACLOFEN. [Concomitant]
     Active Substance: BACLOFEN

REACTIONS (1)
  - Pneumonia [Recovered/Resolved]

NARRATIVE: CASE EVENT DATE: 20210510
